FAERS Safety Report 12905864 (Version 1)
Quarter: 2016Q4

REPORT INFORMATION
  Report Type: Spontaneous
  Country: US (occurrence: US)
  Receive Date: 20161103
  Receipt Date: 20161103
  Transmission Date: 20170207
  Serious: Yes (Death)
  Sender: FDA-Public Use
  Company Number: US-ROCHE-1849954

PATIENT
  Age: 51 Year
  Sex: Female
  Weight: 53.12 kg

DRUGS (3)
  1. RITUXAN [Suspect]
     Active Substance: RITUXIMAB
     Indication: CHRONIC INFLAMMATORY DEMYELINATING POLYRADICULONEUROPATHY
     Route: 041
     Dates: start: 20130116, end: 20160801
  2. PROCRIT [Concomitant]
     Active Substance: ERYTHROPOIETIN
     Indication: ANAEMIA
     Route: 058
     Dates: start: 20110629, end: 20160815
  3. CYTOXAN [Concomitant]
     Active Substance: CYCLOPHOSPHAMIDE
     Indication: CHRONIC INFLAMMATORY DEMYELINATING POLYRADICULONEUROPATHY
     Route: 041
     Dates: start: 20110414, end: 20150815

REACTIONS (2)
  - Off label use [Fatal]
  - Death [Fatal]

NARRATIVE: CASE EVENT DATE: 20130116
